FAERS Safety Report 13463782 (Version 1)
Quarter: 2017Q2

REPORT INFORMATION
  Report Type: Spontaneous
  Country: US (occurrence: US)
  Receive Date: 20170420
  Receipt Date: 20170420
  Transmission Date: 20170830
  Serious: Yes (Other)
  Sender: FDA-Public Use
  Company Number: US-ROCHE-687850

PATIENT
  Age: 12 Year
  Sex: Female
  Weight: 61.2 kg

DRUGS (1)
  1. ACCUTANE [Suspect]
     Active Substance: ISOTRETINOIN
     Indication: ACNE
     Dosage: DOSE: 20 MG; 1 EVERY MORNING AND 2 EVERY EVENING
     Route: 048
     Dates: start: 20091014, end: 20100118

REACTIONS (1)
  - Infectious mononucleosis [Recovered/Resolved]

NARRATIVE: CASE EVENT DATE: 20091224
